FAERS Safety Report 5894818-6 (Version None)
Quarter: 2008Q3

REPORT INFORMATION
  Report Type: 
  Country: None (occurrence: None)
  Receive Date: 20080825
  Receipt Date: 20070712
  Transmission Date: 20090109
  Serious: Yes (Life-Threatening, Hospitalization, Other)
  Sender: FDA-Public Use
  Company Number: 2007-0011936

PATIENT
  Age: 71 Year
  Sex: Male
  Weight: 92 kg

DRUGS (10)
  1. CIDOFOVIR (CIDOFOVIR) [Suspect]
     Indication: POLYOMAVIRUS-ASSOCIATED NEPHROPATHY
     Dosage: 25 MG, ONCE, INTRAVENOUS (NOT OTHERWISE SPECIFIED)
     Route: 042
     Dates: start: 20070403, end: 20070403
  2. PROTONIX [Concomitant]
  3. ASCORBIC ACID [Concomitant]
  4. MULTIVITAMIN [Concomitant]
  5. LIPITOR [Concomitant]
  6. ALLOPURINOL [Concomitant]
  7. LEFLUNOMIDE [Concomitant]
  8. MEGACE [Concomitant]
  9. PROGRAF [Concomitant]
  10. PREDNISONE [Concomitant]

REACTIONS (1)
  - IDIOPATHIC THROMBOCYTOPENIC PURPURA [None]
